FAERS Safety Report 9677878 (Version 1)
Quarter: 2013Q4

REPORT INFORMATION
  Report Type: Spontaneous
  Country: US (occurrence: None)
  Receive Date: 20131107
  Receipt Date: 20131107
  Transmission Date: 20140711
  Serious: Yes (Other)
  Sender: FDA-Public Use
  Company Number: None

PATIENT
  Age: 39 Year
  Sex: Male
  Weight: 96 kg

DRUGS (9)
  1. TOBI POD INHALE [Suspect]
     Indication: BURKHOLDERIA PSEUDOMALLEI INFECTION
     Dosage: TOBI POD INHALER, RESPIRATORY
     Dates: start: 20130909, end: 20131104
  2. ALBUTEROL [Concomitant]
  3. AZITHROMYCIN [Concomitant]
  4. BECONASE [Concomitant]
  5. PULMOZYME [Concomitant]
  6. PRILOSEC [Concomitant]
  7. PAMIDRONATE [Concomitant]
  8. CREON [Concomitant]
  9. ACTIGALL [Concomitant]

REACTIONS (1)
  - Hyperacusis [None]
